FAERS Safety Report 8150718-2 (Version None)
Quarter: 2012Q1

REPORT INFORMATION
  Report Type: 
  Country: None (occurrence: None)
  Receive Date: 20120220
  Receipt Date: 20120212
  Transmission Date: 20120608
  Serious: Yes (Other)
  Sender: FDA-Public Use
  Company Number: US-BAYER-2012-015135

PATIENT

DRUGS (3)
  1. MSM [Concomitant]
     Indication: HEADACHE
  2. EMU OIL [Concomitant]
     Indication: HEADACHE
  3. ALEVE (CAPLET) [Suspect]

REACTIONS (1)
  - DYSURIA [None]
